FAERS Safety Report 14768025 (Version 1)
Quarter: 2018Q2

REPORT INFORMATION
  Report Type: Spontaneous
  Country: ES (occurrence: ES)
  Receive Date: 20180417
  Receipt Date: 20180417
  Transmission Date: 20180711
  Serious: Yes (Other)
  Sender: FDA-Public Use
  Company Number: ES-ROCHE-2104826

PATIENT
  Age: 64 Year
  Sex: Female

DRUGS (10)
  1. VEMURAFENIB. [Suspect]
     Active Substance: VEMURAFENIB
     Dosage: (1-0-1)
     Route: 065
  2. VEMURAFENIB. [Suspect]
     Active Substance: VEMURAFENIB
     Dosage: (1-0-2)
     Route: 065
  3. COBIMETINIB. [Suspect]
     Active Substance: COBIMETINIB
     Dosage: (0-0-2)
     Route: 065
  4. VEMURAFENIB. [Suspect]
     Active Substance: VEMURAFENIB
     Dosage: (1-0-2)
     Route: 065
  5. VEMURAFENIB. [Suspect]
     Active Substance: VEMURAFENIB
     Dosage: (2-0-2)
     Route: 065
  6. COBIMETINIB. [Suspect]
     Active Substance: COBIMETINIB
     Indication: METASTATIC MALIGNANT MELANOMA
     Dosage: (0-0-3)
     Route: 065
  7. COBIMETINIB. [Suspect]
     Active Substance: COBIMETINIB
     Dosage: (0- 0-1)
     Route: 065
  8. COBIMETINIB. [Suspect]
     Active Substance: COBIMETINIB
     Dosage: (0-0-3)
     Route: 065
  9. VEMURAFENIB. [Suspect]
     Active Substance: VEMURAFENIB
     Indication: METASTATIC MALIGNANT MELANOMA
     Dosage: (2-0-2)
     Route: 065
  10. COBIMETINIB. [Suspect]
     Active Substance: COBIMETINIB
     Dosage: (0-0-1)
     Route: 065

REACTIONS (6)
  - Toxic leukoencephalopathy [Unknown]
  - Skin toxicity [Unknown]
  - Nausea [Unknown]
  - Gastrointestinal toxicity [Unknown]
  - Decreased appetite [Unknown]
  - Asthenia [Unknown]
